FAERS Safety Report 7470868-3 (Version None)
Quarter: 2011Q2

REPORT INFORMATION
  Report Type: 
  Country: None (occurrence: None)
  Receive Date: 20110510
  Receipt Date: 20110504
  Transmission Date: 20111010
  Serious: Yes (Life-Threatening, Hospitalization, Other)
  Sender: FDA-Public Use
  Company Number: GB-PFIZER INC-2011096502

PATIENT
  Age: 64 Year
  Sex: Female
  Weight: 60 kg

DRUGS (14)
  1. ACETYLSALICYLIC ACID [Concomitant]
     Dosage: 300 MG, 4X/DAY
  2. TRAMADOL [Concomitant]
     Dosage: 1 DF, AS NEEDED
  3. AMOXICILLIN [Concomitant]
     Dosage: 500 MG, 3X/DAY
     Dates: start: 20110325
  4. LANSOPRAZOLE [Concomitant]
     Dosage: 30 MG, 1X/DAY
  5. SERETIDE [Concomitant]
     Dosage: 2 DF, 2X/DAY
     Route: 055
  6. ADCAL-D3 [Concomitant]
     Dosage: 2 DF, 1X/DAY
  7. TIOTROPIUM BROMIDE [Concomitant]
  8. SULFASALAZINE [Suspect]
     Indication: RHEUMATOID ARTHRITIS
     Dosage: UNK
     Route: 048
     Dates: start: 20110301
  9. ACETYLSALICYLIC ACID [Concomitant]
     Dosage: 75 MG, 1X/DAY
  10. ERDOSTEINE [Concomitant]
     Dosage: 300 MG, 2X/DAY
  11. ISOSORBIDE MONONITRATE [Concomitant]
     Dosage: 60 MG, 1X/DAY
  12. LEVOTHYROXINE SODIUM [Concomitant]
     Dosage: 175 G, 1X/DAY
  13. RISEDRONATE [Concomitant]
     Dosage: 35 MG, WEEKLY
  14. SALBUTAMOL [Concomitant]

REACTIONS (14)
  - RASH [None]
  - EYE PAIN [None]
  - VISUAL IMPAIRMENT [None]
  - TOXIC EPIDERMAL NECROLYSIS [None]
  - INFLAMMATION [None]
  - SKIN EXFOLIATION [None]
  - OROPHARYNGEAL PAIN [None]
  - WHEEZING [None]
  - PRURITUS [None]
  - RASH MACULAR [None]
  - CHEST DISCOMFORT [None]
  - BRONCHOSPASM [None]
  - RESPIRATORY FAILURE [None]
  - DYSPNOEA [None]
